FAERS Safety Report 6171134-9 (Version None)
Quarter: 2009Q2

REPORT INFORMATION
  Report Type: 
  Country: None (occurrence: None)
  Receive Date: 20090428
  Receipt Date: 20090428
  Transmission Date: 20091009
  Serious: No
  Sender: FDA-Public Use
  Company Number: None

PATIENT
  Age: 39 Year
  Sex: Female
  Weight: 75.2971 kg

DRUGS (4)
  1. SINGULAIR [Suspect]
     Indication: ASTHMA
     Dosage: 10MG DAILY INHAL
     Route: 055
     Dates: start: 20080801, end: 20090423
  2. TERBUTALINE BREATH ACTUATED INHALER [Concomitant]
  3. BUDESONIDE WITH FORMOTEROL BREATH ACTUATED DRY POWER INHALER [Concomitant]
  4. SERTRALINE [Concomitant]

REACTIONS (8)
  - ANXIETY [None]
  - CRYING [None]
  - DEPRESSION [None]
  - DISTURBANCE IN ATTENTION [None]
  - INSOMNIA [None]
  - MEMORY IMPAIRMENT [None]
  - PARANOIA [None]
  - SKIN MASS [None]
